FAERS Safety Report 9036991 (Version 2)
Quarter: 2013Q1

REPORT INFORMATION
  Report Type: Spontaneous
  Country: GR (occurrence: None)
  Receive Date: 20121213
  Receipt Date: 20130111
  Transmission Date: 20140127
  Serious: Yes (Hospitalization)
  Sender: FDA-Public Use
  Company Number: 2012034219

PATIENT
  Age: 15 Month
  Sex: Male

DRUGS (3)
  1. PRIVIGEN (IMMUNE GLOBULIN INTRAVENOUS (HUMAN) 10% LIQUID) [Suspect]
     Indication: KAWASAKI^S DISEASE
     Dosage: 2000 MG/KG, 1ST DOSE, 2000 MG/KG, 2ND DOSE (6TH OF 24HRS OF THE DISEASE), 2000 MG/KG, 3RD DOSE IV
  2. ASPIRIN (ACETYLSALICYLIC ACID) [Suspect]
     Indication: KAWASAKI^S DISEASE
     Dosage: 80 MG/KG, 80 MG/KG/24HRS
  3. SOLU-MEDROL (METHYLPREDNISOLONE SODIUM SUCCINATE) [Concomitant]

REACTIONS (2)
  - Drug ineffective [None]
  - Incorrect dose administered [None]
